FAERS Safety Report 14701731 (Version 1)
Quarter: 2018Q1

REPORT INFORMATION
  Report Type: Spontaneous
  Country: US (occurrence: US)
  Receive Date: 20180331
  Receipt Date: 20180331
  Transmission Date: 20180509
  Serious: No
  Sender: FDA-Public Use
  Company Number: US-JNJFOC-20180321845

PATIENT
  Age: 35 Year
  Sex: Female
  Weight: 75.3 kg

DRUGS (1)
  1. INVEGA SUSTENNA [Suspect]
     Active Substance: PALIPERIDONE PALMITATE
     Indication: SCHIZOAFFECTIVE DISORDER DEPRESSIVE TYPE
     Dosage: 12 REFILLS
     Route: 030
     Dates: start: 20170503

REACTIONS (2)
  - Hypertension [Unknown]
  - Adverse event [Unknown]

NARRATIVE: CASE EVENT DATE: 20171027
